FAERS Safety Report 11752026 (Version 1)
Quarter: 2015Q4

REPORT INFORMATION
  Report Type: Spontaneous
  Country: JP (occurrence: JP)
  Receive Date: 20151118
  Receipt Date: 20151118
  Transmission Date: 20160304
  Serious: Yes (Death)
  Sender: FDA-Public Use
  Company Number: JP-BAXALTA-2015BLT002732

PATIENT
  Sex: Male
  Weight: 60.5 kg

DRUGS (1)
  1. FEIBA [Suspect]
     Active Substance: ANTI-INHIBITOR COAGULANT COMPLEX
     Indication: HAEMORRHAGE
     Dosage: 5000 IU, 2X A DAY
     Route: 042
     Dates: start: 20151021, end: 20151022

REACTIONS (1)
  - Cerebral haemorrhage [Fatal]
